FAERS Safety Report 13253071 (Version 1)
Quarter: 2017Q1

REPORT INFORMATION
  Report Type: Spontaneous
  Country: FR (occurrence: FR)
  Receive Date: 20170220
  Receipt Date: 20170220
  Transmission Date: 20170428
  Serious: Yes (Other)
  Sender: FDA-Public Use
  Company Number: ALCN2016FR008413

PATIENT
  Age: 63 Year
  Sex: Female

DRUGS (1)
  1. TRAVATAN [Suspect]
     Active Substance: TRAVOPROST
     Indication: INTRAOCULAR PRESSURE INCREASED
     Dosage: 1 DRP, QD
     Route: 047
     Dates: start: 2009

REACTIONS (11)
  - Cataract [Unknown]
  - Eye irritation [Unknown]
  - Chromatopsia [Not Recovered/Not Resolved]
  - Eye pruritus [Not Recovered/Not Resolved]
  - Eye infection [Recovered/Resolved]
  - Tinnitus [Recovered/Resolved]
  - Dry eye [Not Recovered/Not Resolved]
  - Paraesthesia [Unknown]
  - Macular hole [Unknown]
  - Iris hyperpigmentation [Not Recovered/Not Resolved]
  - Ocular hyperaemia [Not Recovered/Not Resolved]

NARRATIVE: CASE EVENT DATE: 201612
